FAERS Safety Report 8926602 (Version 1)
Quarter: 2012Q4

REPORT INFORMATION
  Report Type: 
  Country: US (occurrence: US)
  Receive Date: 20121127
  Receipt Date: 20121127
  Transmission Date: 20130627
  Serious: No
  Sender: FDA-Public Use
  Company Number: US-PFIZER INC-2012292842

PATIENT
  Age: 75 Year
  Sex: Female
  Weight: 58.05 kg

DRUGS (1)
  1. PREMARIN [Suspect]
     Indication: ATROPHIC VAGINITIS
     Dosage: UNK, 2x/week
     Route: 067
     Dates: start: 2011, end: 20121120

REACTIONS (1)
  - Hydrometra [Not Recovered/Not Resolved]
